FAERS Safety Report 20012068 (Version 1)
Quarter: 2021Q4

REPORT INFORMATION
  Report Type: Spontaneous
  Country: US (occurrence: US)
  Receive Date: 20211029
  Receipt Date: 20211029
  Transmission Date: 20220303
  Serious: No
  Sender: FDA-Public Use
  Company Number: US-BAYER-2021A240136

PATIENT
  Age: 69 Year
  Sex: Female

DRUGS (3)
  1. MIRALAX [Suspect]
     Active Substance: POLYETHYLENE GLYCOL 3350
     Indication: Gastrointestinal disorder
     Dosage: 17 G
     Route: 048
     Dates: start: 20210903, end: 20210910
  2. CHOLESTEROL [Concomitant]
     Active Substance: CHOLESTEROL
     Indication: Product used for unknown indication
     Route: 065
  3. CALCIUM [Concomitant]
     Active Substance: CALCIUM
     Indication: Product used for unknown indication

REACTIONS (1)
  - Drug ineffective [Recovered/Resolved]

NARRATIVE: CASE EVENT DATE: 20210903
